FAERS Safety Report 8421082-6 (Version None)
Quarter: 2012Q2

REPORT INFORMATION
  Report Type: 
  Country: None (occurrence: None)
  Receive Date: 20120604
  Receipt Date: 20120604
  Transmission Date: 20120825
  Serious: Yes (Other)
  Sender: FDA-Public Use
  Company Number: None

PATIENT
  Age: 64 Year
  Sex: Male
  Weight: 88.905 kg

DRUGS (5)
  1. FENTANYL CITRATE [Suspect]
     Dosage: 50-25 MCG/H EACH 48 HOURS
     Dates: start: 20111012, end: 20120214
  2. FENTANYL CITRATE [Suspect]
     Indication: BACK PAIN
     Dosage: 75MCG/H EACH 48 HOURS
     Dates: start: 20070101, end: 20111011
  3. FENTANYL CITRATE [Suspect]
     Indication: PAIN IN EXTREMITY
     Dosage: 75MCG/H EACH 48 HOURS
     Dates: start: 20070101, end: 20111011
  4. FENTANYL CITRATE [Suspect]
     Indication: ARTHRALGIA
     Dosage: 75MCG/H EACH 48 HOURS
     Dates: start: 20070101, end: 20111011
  5. LORAZEPAM [Concomitant]

REACTIONS (5)
  - ENDOCRINE DISORDER [None]
  - FATIGUE [None]
  - DRUG EFFECT DELAYED [None]
  - INSOMNIA [None]
  - HYPERSOMNIA [None]
